FAERS Safety Report 16075958 (Version 1)
Quarter: 2019Q1

REPORT INFORMATION
  Report Type: Report from Study
  Country: None (occurrence: RO)
  Receive Date: 20190315
  Receipt Date: 20190315
  Transmission Date: 20190418
  Serious: Yes (Other)
  Sender: FDA-Public Use
  Company Number: RO-ABBVIE-19K-135-2703753-00

PATIENT
  Sex: Female

DRUGS (1)
  1. HUMIRA [Suspect]
     Active Substance: ADALIMUMAB
     Indication: PSORIASIS
     Route: 058
     Dates: start: 20110315

REACTIONS (3)
  - Psoriatic arthropathy [Not Recovered/Not Resolved]
  - Spinal pain [Not Recovered/Not Resolved]
  - Spinal synovial cyst [Not Recovered/Not Resolved]
